FAERS Safety Report 23786007 (Version 8)
Quarter: 2025Q1

REPORT INFORMATION
  Report Type: Report from Study
  Country: US (occurrence: US)
  Receive Date: 20240426
  Receipt Date: 20250203
  Transmission Date: 20250409
  Serious: Yes (Hospitalization)
  Sender: ABBVIE
  Company Number: US-ABBVIE-5729797

PATIENT
  Age: 65 Year
  Sex: Female
  Weight: 103 kg

DRUGS (11)
  1. RINVOQ [Suspect]
     Active Substance: UPADACITINIB
     Indication: Rheumatoid arthritis
     Route: 048
     Dates: start: 20201110, end: 20231101
  2. RINVOQ [Suspect]
     Active Substance: UPADACITINIB
     Indication: Rheumatoid arthritis
     Route: 048
     Dates: end: 20231219
  3. PROTONIX [Concomitant]
     Active Substance: PANTOPRAZOLE SODIUM
     Indication: Product used for unknown indication
  4. PROTONIX [Concomitant]
     Active Substance: PANTOPRAZOLE SODIUM
     Indication: Product used for unknown indication
  5. VITAMIN D2 [Concomitant]
     Active Substance: ERGOCALCIFEROL
     Indication: Product used for unknown indication
  6. VITAMIN D2 [Concomitant]
     Active Substance: ERGOCALCIFEROL
     Indication: Product used for unknown indication
  7. MELOXICAM [Concomitant]
     Active Substance: MELOXICAM
     Indication: Product used for unknown indication
  8. MELOXICAM [Concomitant]
     Active Substance: MELOXICAM
     Indication: Product used for unknown indication
  9. COVID-19 vaccine [Concomitant]
     Indication: COVID-19 immunisation
     Route: 030
  10. COVID-19 vaccine [Concomitant]
     Indication: COVID-19 immunisation
     Route: 030
  11. COVID-19 vaccine [Concomitant]
     Indication: COVID-19 immunisation
     Route: 030

REACTIONS (11)
  - Ureterolithiasis [Recovered/Resolved]
  - COVID-19 [Unknown]
  - Pulmonary embolism [Not Recovered/Not Resolved]
  - Pancreatic carcinoma [Not Recovered/Not Resolved]
  - Deep vein thrombosis [Recovered/Resolved]
  - Diabetes mellitus [Unknown]
  - Hypoxia [Recovered/Resolved]
  - Atelectasis [Recovered/Resolved]
  - Oedema peripheral [Unknown]
  - Cataract [Unknown]
  - Headache [Unknown]

NARRATIVE: CASE EVENT DATE: 20230901
